FAERS Safety Report 6569725-6 (Version None)
Quarter: 2010Q1

REPORT INFORMATION
  Report Type: 
  Country: None (occurrence: None)
  Receive Date: 20100204
  Receipt Date: 20100129
  Transmission Date: 20100710
  Serious: Yes (Hospitalization)
  Sender: FDA-Public Use
  Company Number: PHHO2009FR14773

PATIENT
  Sex: Female
  Weight: 57 kg

DRUGS (7)
  1. EXELON [Suspect]
     Indication: DEMENTIA ALZHEIMER'S TYPE
     Dosage: 5 CM
     Route: 062
     Dates: start: 20090901
  2. EXELON [Suspect]
     Indication: DEMENTIA ALZHEIMER'S TYPE
     Dosage: NO TREATMENT
  3. BLINDED NO TREATMENT RECEIVED NOMED [Suspect]
     Indication: DEMENTIA ALZHEIMER'S TYPE
     Dosage: NO TREATMENT
  4. CIRKAN [Concomitant]
     Indication: VARICOSE VEIN
     Dosage: 4, PER DAY
     Route: 048
     Dates: start: 20080101
  5. EUPHYTOSE [Concomitant]
     Indication: AGGRESSION
     Dosage: 3, PER DAY
     Route: 048
     Dates: start: 20090605
  6. IODINE [Concomitant]
  7. DOMPERIDONE [Concomitant]

REACTIONS (14)
  - ABDOMINAL PAIN [None]
  - ABDOMINAL PAIN LOWER [None]
  - ASCITES [None]
  - COLOSTOMY [None]
  - CONDITION AGGRAVATED [None]
  - CYST [None]
  - DIVERTICULITIS [None]
  - GASTROINTESTINAL HYPERMOTILITY [None]
  - INTESTINAL RESECTION [None]
  - LARGE INTESTINE ANASTOMOSIS [None]
  - LARGE INTESTINE OPERATION [None]
  - PAIN [None]
  - PYREXIA [None]
  - SIGMOIDITIS [None]
